FAERS Safety Report 6059165-0 (Version None)
Quarter: 2009Q1

REPORT INFORMATION
  Report Type: 
  Country: None (occurrence: None)
  Receive Date: 20090128
  Receipt Date: 20081112
  Transmission Date: 20090719
  Serious: Yes (Other)
  Sender: FDA-Public Use
  Company Number: 2008US003124

PATIENT

DRUGS (1)
  1. LEXISCAN [Suspect]
     Indication: DRUG USE FOR UNKNOWN INDICATION
     Dates: start: 20081111, end: 20081111

REACTIONS (3)
  - BRADYCARDIA [None]
  - HYPOTENSION [None]
  - LOSS OF CONSCIOUSNESS [None]
